FAERS Safety Report 23039519 (Version 2)
Quarter: 2023Q4

REPORT INFORMATION
  Report Type: Spontaneous
  Country: US (occurrence: US)
  Receive Date: 20231006
  Receipt Date: 20231012
  Transmission Date: 20240110
  Serious: Yes (Hospitalization, Other)
  Sender: FDA-Public Use
  Company Number: US-PURDUE-USA-2023-0305122

PATIENT
  Age: 61 Year
  Sex: Female

DRUGS (8)
  1. HYDROCODONE BITARTRATE [Suspect]
     Active Substance: HYDROCODONE BITARTRATE
     Indication: Pain management
     Dosage: 8-10 TABLETS/ DAY (REPORTED)
     Route: 065
  2. BUPRENORPHINE [Suspect]
     Active Substance: BUPRENORPHINE
     Indication: Drug use disorder
     Dosage: 20MCG/HR (DAY 1)
     Route: 062
  3. BUPRENORPHINE [Suspect]
     Active Substance: BUPRENORPHINE
     Dosage: 40MCG/HR (DAY 2)
     Route: 062
  4. BUPRENORPHINE [Suspect]
     Active Substance: BUPRENORPHINE
     Dosage: 60MCG/ HR (DAY 3,4,5)
     Route: 062
  5. BUPRENORPHINE [Concomitant]
     Active Substance: BUPRENORPHINE
     Indication: Drug use disorder
     Dosage: 2MG SL BID, CONTINUE 60MCG/HR PATCHES
     Route: 060
  6. BUPRENORPHINE [Concomitant]
     Active Substance: BUPRENORPHINE
     Dosage: 4MG SL BID, CONTINUE 60MCG/HR PATCHES
     Route: 060
  7. BUPRENORPHINE [Concomitant]
     Active Substance: BUPRENORPHINE
     Dosage: 8MG SL BID, REMOVE ALL PATCHES
     Route: 060
  8. BUPRENORPHINE [Concomitant]
     Active Substance: BUPRENORPHINE
     Dosage: 8-16MG SL BID PLUS 4MG SL Q6HR PRN WITHDRAWAL (MAX 32MG TOTAL DAILY DOSE)
     Route: 060

REACTIONS (3)
  - Road traffic accident [Unknown]
  - Drug abuse [Unknown]
  - Off label use [Unknown]
